FAERS Safety Report 6435825-4 (Version None)
Quarter: 2009Q4

REPORT INFORMATION
  Report Type: 
  Country: None (occurrence: None)
  Receive Date: 20091110
  Receipt Date: 20091110
  Transmission Date: 20100525
  Serious: Yes (Other)
  Sender: FDA-Public Use
  Company Number: None

PATIENT
  Age: 85 Year
  Sex: Female
  Weight: 65 kg

DRUGS (1)
  1. ASPIRIN AND DIPYRIDAMOLE [Suspect]
     Indication: CEREBROVASCULAR ACCIDENT PROPHYLAXIS
     Dosage: 1 TAB BID PO
     Route: 048
     Dates: start: 20081024, end: 20090212

REACTIONS (6)
  - ASTHENIA [None]
  - DISORIENTATION [None]
  - DYSPNOEA [None]
  - FEELING ABNORMAL [None]
  - HEADACHE [None]
  - NIGHTMARE [None]
